FAERS Safety Report 10219964 (Version 1)
Quarter: 2014Q2

REPORT INFORMATION
  Report Type: Spontaneous
  Country: DE (occurrence: DE)
  Receive Date: 20140605
  Receipt Date: 20140605
  Transmission Date: 20141212
  Serious: Yes (Death, Other)
  Sender: FDA-Public Use
  Company Number: DE-ASTRAZENECA-2014SE38938

PATIENT
  Sex: Male
  Weight: 1.8 kg

DRUGS (5)
  1. SEROQUEL PROLONG [Suspect]
     Indication: BIPOLAR DISORDER
     Route: 064
     Dates: start: 20121213
  2. SEROQUEL PROLONG [Suspect]
     Indication: BIPOLAR DISORDER
     Route: 064
     Dates: end: 20130810
  3. SERTRALINE [Suspect]
     Indication: BIPOLAR DISORDER
     Route: 064
     Dates: start: 20130304, end: 20130810
  4. FOLIC ACID [Concomitant]
     Indication: PROPHYLAXIS OF NEURAL TUBE DEFECT
     Route: 064
     Dates: start: 20130115
  5. FOLIC ACID [Concomitant]
     Indication: PROPHYLAXIS OF NEURAL TUBE DEFECT
     Dosage: FROM SECOND TRIMENON
     Route: 064

REACTIONS (3)
  - Foetal death [Fatal]
  - Vena cava thrombosis [Not Recovered/Not Resolved]
  - Renal vein thrombosis [Not Recovered/Not Resolved]
